FAERS Safety Report 22284726 (Version 1)
Quarter: 2023Q2

REPORT INFORMATION
  Report Type: Spontaneous
  Country: US (occurrence: None)
  Receive Date: 20230503
  Receipt Date: 20230503
  Transmission Date: 20230722
  Serious: Yes (Hospitalization)
  Sender: FDA-Public Use
  Company Number: None

PATIENT
  Age: 91 Year
  Sex: Male
  Weight: 58.06 kg

DRUGS (4)
  1. HYDROXYUREA [Suspect]
     Active Substance: HYDROXYUREA
  2. FLOMAX [Concomitant]
  3. JAKAFI [Concomitant]
     Active Substance: RUXOLITINIB
  4. OXYBUTYNIN [Concomitant]
     Active Substance: OXYBUTYNIN

REACTIONS (1)
  - Sepsis [None]

NARRATIVE: CASE EVENT DATE: 20230502
